FAERS Safety Report 7400684-X (Version None)
Quarter: 2011Q2

REPORT INFORMATION
  Report Type: 
  Country: None (occurrence: None)
  Receive Date: 20110407
  Receipt Date: 20101022
  Transmission Date: 20111010
  Serious: Yes (Hospitalization)
  Sender: FDA-Public Use
  Company Number: A0889209A

PATIENT
  Sex: Female
  Weight: 58.2 kg

DRUGS (1)
  1. AVANDAMET [Suspect]
     Indication: TYPE 2 DIABETES MELLITUS
     Route: 048
     Dates: start: 20090617, end: 20100107

REACTIONS (10)
  - INJURY [None]
  - FEAR [None]
  - BUNDLE BRANCH BLOCK RIGHT [None]
  - TRANSIENT ISCHAEMIC ATTACK [None]
  - MALAISE [None]
  - ECONOMIC PROBLEM [None]
  - EMOTIONAL DISTRESS [None]
  - LACUNAR INFARCTION [None]
  - ANHEDONIA [None]
  - CARDIOVASCULAR DISORDER [None]
